FAERS Safety Report 10709638 (Version 1)
Quarter: 2015Q1

REPORT INFORMATION
  Report Type: Spontaneous
  Country: US (occurrence: None)
  Receive Date: 20150113
  Receipt Date: 20150113
  Transmission Date: 20150721
  Serious: Yes (Hospitalization)
  Sender: FDA-Public Use
  Company Number: None

PATIENT
  Age: 53 Year
  Sex: Female
  Weight: 61.24 kg

DRUGS (1)
  1. TAMIFLU [Suspect]
     Active Substance: OSELTAMIVIR PHOSPHATE
     Indication: INFLUENZA
     Dosage: 1
     Route: 048
     Dates: start: 20141229, end: 20150102

REACTIONS (3)
  - Rib fracture [None]
  - Seizure [None]
  - Vision blurred [None]

NARRATIVE: CASE EVENT DATE: 20150106
